FAERS Safety Report 23865019 (Version 4)
Quarter: 2025Q2

REPORT INFORMATION
  Report Type: Report from Study
  Country: US (occurrence: US)
  Receive Date: 20240516
  Receipt Date: 20250530
  Transmission Date: 20250717
  Serious: No
  Sender: ABBVIE
  Company Number: US-ABBVIE-5761832

PATIENT
  Age: 66 Year
  Sex: Male

DRUGS (2)
  1. SKYRIZI [Suspect]
     Active Substance: RISANKIZUMAB-RZAA
     Indication: Psoriasis
     Route: 058
     Dates: start: 20211029, end: 202306
  2. SKYRIZI [Suspect]
     Active Substance: RISANKIZUMAB-RZAA
     Route: 058
     Dates: start: 20220221

REACTIONS (2)
  - Psoriasis [Recovered/Resolved]
  - Psoriasis [Recovered/Resolved]

NARRATIVE: CASE EVENT DATE: 20240101
